FAERS Safety Report 6801497-X (Version None)
Quarter: 2010Q2

REPORT INFORMATION
  Report Type: 
  Country: None (occurrence: None)
  Receive Date: 20100629
  Receipt Date: 20100621
  Transmission Date: 20101027
  Serious: Yes (Other)
  Sender: FDA-Public Use
  Company Number: US-SANOFI-AVENTIS-2010SA026491

PATIENT
  Age: 60 Year
  Sex: Female

DRUGS (2)
  1. OPTICLICK [Suspect]
     Indication: TYPE 2 DIABETES MELLITUS
     Dates: start: 20050101
  2. LANTUS [Suspect]
     Indication: TYPE 2 DIABETES MELLITUS
     Dosage: 20 UNITS/25 UNITS
     Route: 058
     Dates: start: 20050101

REACTIONS (4)
  - BLOOD GLUCOSE INCREASED [None]
  - CATARACT OPERATION [None]
  - PRODUCT QUALITY ISSUE [None]
  - RETINAL HAEMORRHAGE [None]
